FAERS Safety Report 4285182-7 (Version None)
Quarter: 2004Q1

REPORT INFORMATION
  Report Type: 
  Country: None (occurrence: None)
  Receive Date: 20040203
  Receipt Date: 20040203
  Transmission Date: 20041129
  Serious: Yes (Life-Threatening, Hospitalization)
  Sender: FDA-Public Use
  Company Number: None

PATIENT
  Age: 73 Year
  Sex: Female

DRUGS (8)
  1. ENOXAPARIN SODIUM [Suspect]
     Indication: DEEP VEIN THROMBOSIS
     Dosage: 80 MG SQ Q12H
     Dates: start: 20030823, end: 20030825
  2. INSULIN [Concomitant]
  3. WARFARIN SODIUM [Concomitant]
  4. CEPHALEXIN [Concomitant]
  5. RANITIDINE [Concomitant]
  6. LANSOPRAZOLE [Concomitant]
  7. DIPHENOXYLATE [Concomitant]
  8. ATROPINE [Concomitant]

REACTIONS (2)
  - INTERNATIONAL NORMALISED RATIO ABNORMAL [None]
  - PLATELET COUNT DECREASED [None]
